FAERS Safety Report 20163004 (Version 1)
Quarter: 2021Q4

REPORT INFORMATION
  Report Type: Spontaneous
  Country: JP (occurrence: JP)
  Receive Date: 20211209
  Receipt Date: 20211209
  Transmission Date: 20220303
  Serious: Yes (Hospitalization)
  Sender: FDA-Public Use
  Company Number: JP-MLMSERVICE-20211130-3246256-1

PATIENT
  Age: 57 Year
  Sex: Male

DRUGS (1)
  1. METFORMIN [Suspect]
     Active Substance: METFORMIN HYDROCHLORIDE
     Indication: Diabetes mellitus
     Dosage: STARTED AT SIX MONTHS PRIOR TO ADMISSION
     Route: 065

REACTIONS (2)
  - Toxic encephalopathy [Not Recovered/Not Resolved]
  - Lactic acidosis [Recovered/Resolved]
